FAERS Safety Report 4597969-1 (Version None)
Quarter: 2005Q1

REPORT INFORMATION
  Report Type: 
  Country: None (occurrence: None)
  Receive Date: 20050301
  Receipt Date: 20050218
  Transmission Date: 20050727
  Serious: Yes (Life-Threatening)
  Sender: FDA-Public Use
  Company Number: 212553

PATIENT
  Age: 16 Year
  Sex: Female

DRUGS (1)
  1. NUTROPIN AQ [Suspect]
     Indication: GROWTH HORMONE DEFICIENCY
     Dosage: 3 MG, QD, SUBCUTANEOUS
     Route: 058
     Dates: start: 20030616, end: 20040722

REACTIONS (2)
  - BONE SARCOMA [None]
  - FALL [None]
